FAERS Safety Report 10082919 (Version 1)
Quarter: 2014Q2

REPORT INFORMATION
  Report Type: Spontaneous
  Country: US (occurrence: US)
  Receive Date: 20140417
  Receipt Date: 20140417
  Transmission Date: 20141212
  Serious: Yes (Hospitalization, Other)
  Sender: FDA-Public Use
  Company Number: US-ORION CORPORATION ORION PHARMA-SPIR2014-0002

PATIENT
  Age: 78 Year
  Sex: Male

DRUGS (6)
  1. SPIRONOLACTONE [Suspect]
     Route: 065
  2. AMLODIPINE/BENAZEPRIL [Interacting]
     Dosage: 10/20 MG
     Route: 065
  3. ALISKIREN [Interacting]
     Route: 065
  4. HYDROCHLOROTHIAZIDE [Suspect]
     Route: 065
  5. CARVEDILOL [Suspect]
     Route: 065
  6. ROSUVASTATIN [Suspect]
     Route: 065

REACTIONS (6)
  - Renal failure acute [Recovered/Resolved]
  - Hyperkalaemia [Recovered/Resolved]
  - Dyspnoea [Unknown]
  - Bradycardia [Unknown]
  - Rales [Unknown]
  - Defect conduction intraventricular [Unknown]
